FAERS Safety Report 24457785 (Version 1)
Quarter: 2024Q4

REPORT INFORMATION
  Report Type: Spontaneous
  Country: US (occurrence: US)
  Receive Date: 20241018
  Receipt Date: 20241018
  Transmission Date: 20250115
  Serious: No
  Sender: ROCHE
  Company Number: US-ROCHE-3436438

PATIENT
  Sex: Male
  Weight: 84.0 kg

DRUGS (1)
  1. CATHFLO ACTIVASE [Suspect]
     Active Substance: ALTEPLASE
     Indication: Thrombosis
     Dosage: 2MG/50ML INTRAVENTRICULAR PER IMPELLA PUMP ONE TIME?IV BAG WITH 2MG AND 48ML SWFI PURGE SOLUTION
     Route: 042
     Dates: start: 20230922, end: 20230923

REACTIONS (2)
  - Off label use [Unknown]
  - No adverse event [Unknown]
